FAERS Safety Report 6677621-9 (Version None)
Quarter: 2010Q2

REPORT INFORMATION
  Report Type: 
  Country: None (occurrence: None)
  Receive Date: 20100412
  Receipt Date: 20100308
  Transmission Date: 20101027
  Serious: No
  Sender: FDA-Public Use
  Company Number: US-ALEXION-A201000264

PATIENT
  Sex: Male

DRUGS (8)
  1. SOLIRIS [Suspect]
     Indication: PAROXYSMAL NOCTURNAL HAEMOGLOBINURIA
     Dosage: UNK
     Route: 042
     Dates: start: 20081125
  2. SOLIRIS [Suspect]
     Dosage: 900 MG, Q2W
     Route: 042
     Dates: end: 20090801
  3. SOLIRIS [Suspect]
     Dosage: 1200 MG, Q2W
     Route: 042
     Dates: start: 20090825
  4. SOLIRIS [Suspect]
     Dosage: 900 MG, Q2W
     Route: 042
  5. EXJADE [Concomitant]
     Indication: IRON OVERLOAD
     Dosage: 500 UNK, TID
     Route: 048
     Dates: end: 20100312
  6. EXJADE [Concomitant]
     Dosage: 500 UNK, 6X/DAY
     Route: 048
     Dates: start: 20100312
  7. FOLIC ACID [Concomitant]
     Indication: PAROXYSMAL NOCTURNAL HAEMOGLOBINURIA
     Dosage: 1 MG, QD
     Route: 048
  8. VITAMIN B12                        /00056201/ [Concomitant]
     Dosage: 1000 UG, QD
     Route: 048

REACTIONS (3)
  - FATIGUE [None]
  - FLANK PAIN [None]
  - HEADACHE [None]
